FAERS Safety Report 16394092 (Version 1)
Quarter: 2019Q2

REPORT INFORMATION
  Report Type: Spontaneous
  Country: MT (occurrence: MT)
  Receive Date: 20190605
  Receipt Date: 20190605
  Transmission Date: 20190711
  Serious: Yes (Other)
  Sender: FDA-Public Use
  Company Number: PHHY2019MT125498

PATIENT
  Age: 11 Year
  Sex: Male

DRUGS (1)
  1. RITALIN [Suspect]
     Active Substance: METHYLPHENIDATE HYDROCHLORIDE
     Indication: ATTENTION DEFICIT/HYPERACTIVITY DISORDER
     Dosage: 10 MG, QD
     Route: 048
     Dates: start: 201904

REACTIONS (2)
  - Encephalopathy [Not Recovered/Not Resolved]
  - Cerebrovascular disorder [Not Recovered/Not Resolved]

NARRATIVE: CASE EVENT DATE: 201905
